FAERS Safety Report 13081294 (Version 1)
Quarter: 2017Q1

REPORT INFORMATION
  Report Type: Spontaneous
  Country: FR (occurrence: FR)
  Receive Date: 20170103
  Receipt Date: 20170103
  Transmission Date: 20170428
  Serious: Yes (Hospitalization)
  Sender: FDA-Public Use
  Company Number: FR-JNJFOC-20170100483

PATIENT
  Age: 65 Year
  Sex: Female

DRUGS (12)
  1. WELLVONE [Concomitant]
     Active Substance: ATOVAQUONE
  2. MONTELUKAST [Concomitant]
     Active Substance: MONTELUKAST SODIUM
  3. ZELITREX [Concomitant]
     Active Substance: VALACYCLOVIR HYDROCHLORIDE
  4. IMBRUVICA [Suspect]
     Active Substance: IBRUTINIB
     Indication: FOLLICLE CENTRE LYMPHOMA, FOLLICULAR GRADE I, II, III STAGE IV
     Route: 048
     Dates: start: 20160620, end: 20161203
  5. IMBRUVICA [Suspect]
     Active Substance: IBRUTINIB
     Indication: FOLLICLE CENTRE LYMPHOMA, FOLLICULAR GRADE I, II, III STAGE IV
     Route: 048
     Dates: start: 20150923
  6. SALBUTAMOL [Concomitant]
     Active Substance: ALBUTEROL
  7. SYMBICORT [Concomitant]
     Active Substance: BUDESONIDE\FORMOTEROL FUMARATE DIHYDRATE
  8. SPIRAMYCINE [Concomitant]
     Active Substance: SPIRAMYCIN
  9. SPIRAMYCINE [Concomitant]
     Active Substance: SPIRAMYCIN
  10. ZITHROMAX [Concomitant]
     Active Substance: AZITHROMYCIN DIHYDRATE
  11. DIFFU K [Concomitant]
     Active Substance: POTASSIUM CHLORIDE
  12. LOVENOX [Concomitant]
     Active Substance: ENOXAPARIN SODIUM

REACTIONS (4)
  - Product use issue [Unknown]
  - Dyspnoea [Recovering/Resolving]
  - Bronchopneumopathy [Recovering/Resolving]
  - Off label use [Unknown]

NARRATIVE: CASE EVENT DATE: 20161011
